FAERS Safety Report 18539027 (Version 1)
Quarter: 2020Q4

REPORT INFORMATION
  Report Type: Other
  Country: US (occurrence: US)
  Receive Date: 20201124
  Receipt Date: 20201124
  Transmission Date: 20210114
  Serious: Yes (Other)
  Sender: FDA-Public Use
  Company Number: US-ROCHE-2718512

PATIENT
  Sex: Male

DRUGS (1)
  1. XOLAIR [Suspect]
     Active Substance: OMALIZUMAB
     Indication: ASTHMA
     Dosage: ONGOING : YES
     Route: 065
     Dates: start: 2007

REACTIONS (2)
  - Anaphylactic reaction [Unknown]
  - Illness [Not Recovered/Not Resolved]
